FAERS Safety Report 11219063 (Version 2)
Quarter: 2015Q4

REPORT INFORMATION
  Report Type: Spontaneous
  Country: FR (occurrence: FR)
  Receive Date: 20150625
  Receipt Date: 20151112
  Transmission Date: 20160304
  Serious: Yes (Congenital Anomaly, Other)
  Sender: FDA-Public Use
  Company Number: FR-ABBVIE-15P-056-1413858-00

PATIENT
  Sex: Male
  Weight: 2.5 kg

DRUGS (4)
  1. NORVIR [Suspect]
     Active Substance: RITONAVIR
     Indication: MATERNAL EXPOSURE TIMING UNSPECIFIED
     Route: 064
  2. ISENTRESS [Suspect]
     Active Substance: RALTEGRAVIR POTASSIUM
     Indication: MATERNAL EXPOSURE TIMING UNSPECIFIED
     Route: 064
  3. TRANDATE [Suspect]
     Active Substance: LABETALOL HYDROCHLORIDE
     Indication: MATERNAL EXPOSURE TIMING UNSPECIFIED
     Route: 064
  4. PREZISTA [Suspect]
     Active Substance: DARUNAVIR ETHANOLATE
     Indication: MATERNAL EXPOSURE TIMING UNSPECIFIED
     Route: 064

REACTIONS (18)
  - Congenital anomaly of inner ear [Not Recovered/Not Resolved]
  - Foetal growth restriction [Unknown]
  - Anotia [Unknown]
  - Brain midline shift [Not Recovered/Not Resolved]
  - Oesophageal atresia [Not Recovered/Not Resolved]
  - Ventricular septal defect [Not Recovered/Not Resolved]
  - Foetal exposure during pregnancy [Unknown]
  - Cerebral ventricle dilatation [Not Recovered/Not Resolved]
  - Cyanosis [Unknown]
  - Visual pathway disorder [Not Recovered/Not Resolved]
  - Hemivertebra [Unknown]
  - VACTERL syndrome [Unknown]
  - Cerebral ventricle dilatation [Unknown]
  - Hemivertebra [Not Recovered/Not Resolved]
  - Synostosis [Not Recovered/Not Resolved]
  - Congenital aqueductal stenosis [Not Recovered/Not Resolved]
  - Spine malformation [Not Recovered/Not Resolved]
  - Breech presentation [Unknown]
